FAERS Safety Report 19257342 (Version 1)
Quarter: 2021Q2

REPORT INFORMATION
  Report Type: Spontaneous
  Country: SK (occurrence: SK)
  Receive Date: 20210514
  Receipt Date: 20210514
  Transmission Date: 20210717
  Serious: Yes (Death, Life-Threatening, Hospitalization, Other)
  Sender: FDA-Public Use
  Company Number: SK-ALVOGEN-2021-ALVOGEN-116931

PATIENT
  Age: 33 Year
  Sex: Female

DRUGS (11)
  1. MOXIFLOXACIN. [Concomitant]
     Active Substance: MOXIFLOXACIN
     Indication: ANTIBIOTIC THERAPY
  2. ESTRADIOL. [Suspect]
     Active Substance: ESTRADIOL
     Indication: HORMONE THERAPY
     Route: 048
  3. ESTRADIOL. [Suspect]
     Active Substance: ESTRADIOL
     Indication: HORMONE THERAPY
     Route: 048
  4. AZATHIOPRINE. [Suspect]
     Active Substance: AZATHIOPRINE
     Indication: COLITIS ULCERATIVE
  5. MEROPENEM. [Concomitant]
     Active Substance: MEROPENEM
     Indication: ANTIBIOTIC THERAPY
  6. MESALAZINE [Concomitant]
     Active Substance: MESALAMINE
     Indication: COLITIS ULCERATIVE
  7. FLUCONAZOLE. [Suspect]
     Active Substance: FLUCONAZOLE
     Indication: ANTIFUNGAL TREATMENT
     Route: 051
  8. OXYGEN. [Concomitant]
     Active Substance: OXYGEN
     Indication: DRUG HYPERSENSITIVITY
  9. LINEZOLID. [Suspect]
     Active Substance: LINEZOLID
     Indication: ANTIBIOTIC THERAPY
  10. PROGESTERONE. [Suspect]
     Active Substance: PROGESTERONE
     Indication: HORMONE THERAPY
     Route: 067
  11. DEXAMETHASONE. [Concomitant]
     Active Substance: DEXAMETHASONE
     Indication: DRUG HYPERSENSITIVITY

REACTIONS (17)
  - Pneumonia [Fatal]
  - Hypotension [Not Recovered/Not Resolved]
  - Myelosuppression [Fatal]
  - Anaemia [Not Recovered/Not Resolved]
  - COVID-19 [Fatal]
  - Hepatic failure [Fatal]
  - Pancytopenia [Not Recovered/Not Resolved]
  - Respiratory failure [Fatal]
  - Lymphopenia [Not Recovered/Not Resolved]
  - Sinus tachycardia [Not Recovered/Not Resolved]
  - Candida infection [Not Recovered/Not Resolved]
  - Drug-induced liver injury [Fatal]
  - Atrioventricular block second degree [Not Recovered/Not Resolved]
  - Thrombocytopenia [Not Recovered/Not Resolved]
  - Hepatotoxicity [Fatal]
  - Acinetobacter infection [Not Recovered/Not Resolved]
  - Multiple organ dysfunction syndrome [Fatal]
